FAERS Safety Report 4580392-3 (Version None)
Quarter: 2005Q1

REPORT INFORMATION
  Report Type: 
  Country: None (occurrence: None)
  Receive Date: 20050214
  Receipt Date: 20040109
  Transmission Date: 20050727
  Serious: No
  Sender: FDA-Public Use
  Company Number: US-GLAXOSMITHKLINE-A0492690A

PATIENT

DRUGS (4)
  1. LAMICTAL [Suspect]
     Indication: ILL-DEFINED DISORDER
     Route: 048
  2. LEXAPRO [Concomitant]
  3. DEXEDRINE [Concomitant]
  4. LITHIUM [Concomitant]

REACTIONS (1)
  - RASH GENERALISED [None]
